FAERS Safety Report 24544445 (Version 1)
Quarter: 2024Q4

REPORT INFORMATION
  Report Type: Spontaneous
  Country: GB (occurrence: GB)
  Receive Date: 20241024
  Receipt Date: 20241024
  Transmission Date: 20250115
  Serious: Yes (Hospitalization)
  Sender: AMGEN
  Company Number: GB-AMGEN-GBRSP2024209829

PATIENT
  Sex: Male

DRUGS (1)
  1. ARANESP [Suspect]
     Active Substance: DARBEPOETIN ALFA
     Indication: Haemodialysis
     Dosage: 10 MICROGRAM, QWK (ARANESP 1OOMCG/0.5MI)
     Route: 040

REACTIONS (2)
  - Unevaluable event [Unknown]
  - Off label use [Unknown]
